FAERS Safety Report 12908922 (Version 1)
Quarter: 2016Q4

REPORT INFORMATION
  Report Type: Spontaneous
  Country: US (occurrence: US)
  Receive Date: 20161103
  Receipt Date: 20161103
  Transmission Date: 20170207
  Serious: No
  Sender: FDA-Public Use
  Company Number: US-JAZZ-2016-US-016643

PATIENT
  Sex: Female

DRUGS (18)
  1. RELPAX [Concomitant]
     Active Substance: ELETRIPTAN HYDROBROMIDE
  2. VITAMIN D [Concomitant]
     Active Substance: CHOLECALCIFEROL
  3. EXCEDRIN [Concomitant]
     Active Substance: ACETAMINOPHEN\ASPIRIN\CAFFEINE
  4. XYREM [Suspect]
     Active Substance: SODIUM OXYBATE
     Indication: CATAPLEXY
     Dosage: DOSE ADJUSTMENT
     Route: 048
     Dates: start: 201401, end: 201404
  5. XYREM [Suspect]
     Active Substance: SODIUM OXYBATE
     Dosage: 3 G, SECOND DOSE
     Dates: start: 201404
  6. TIZANIDINE. [Suspect]
     Active Substance: TIZANIDINE
     Indication: PRODUCT USED FOR UNKNOWN INDICATION
  7. LYRICA [Concomitant]
     Active Substance: PREGABALIN
  8. MELOXICAM. [Concomitant]
     Active Substance: MELOXICAM
  9. OXYCODONE [Concomitant]
     Active Substance: OXYCODONE
  10. MULTIVITAMINS [Concomitant]
     Active Substance: VITAMINS
  11. SUMATRIPTAN. [Concomitant]
     Active Substance: SUMATRIPTAN
  12. XYREM [Suspect]
     Active Substance: SODIUM OXYBATE
     Indication: NARCOLEPSY
     Dosage: 2.25 G, BID
     Route: 048
     Dates: start: 201312, end: 201401
  13. XYREM [Suspect]
     Active Substance: SODIUM OXYBATE
     Dosage: 3.75 G, FIRST DOSE
     Dates: start: 201404
  14. TIZANIDINE HYDROCHLORIDE. [Concomitant]
     Active Substance: TIZANIDINE HYDROCHLORIDE
  15. ZOFRAN [Concomitant]
     Active Substance: ONDANSETRON HYDROCHLORIDE
  16. BACTRIM [Concomitant]
     Active Substance: SULFAMETHOXAZOLE\TRIMETHOPRIM
  17. NAPROXEN. [Concomitant]
     Active Substance: NAPROXEN
  18. FISH OIL [Concomitant]
     Active Substance: FISH OIL

REACTIONS (6)
  - Therapeutic response unexpected [Unknown]
  - Back pain [Unknown]
  - Pre-existing condition improved [Unknown]
  - Unevaluable event [Unknown]
  - Weight increased [Unknown]
  - Somnolence [Unknown]
